FAERS Safety Report 23746701 (Version 1)
Quarter: 2024Q2

REPORT INFORMATION
  Report Type: Spontaneous
  Country: US (occurrence: US)
  Receive Date: 20240416
  Receipt Date: 20240416
  Transmission Date: 20240715
  Serious: Yes (Other)
  Sender: FDA-Public Use
  Company Number: US-ABBVIE-5710659

PATIENT
  Sex: Female

DRUGS (4)
  1. REFRESH DIGITAL PF [Suspect]
     Active Substance: CARBOXYMETHYLCELLULOSE SODIUM\GLYCERIN\POLYSORBATE 80
     Indication: Product used for unknown indication
     Dosage: FORM STRENGTH: GLYCERIN 10MG/ML;POLY 80 5MG/ML;CMC 5MG/ML
     Route: 047
  2. REFRESH LIQUIGEL [Suspect]
     Active Substance: CARBOXYMETHYLCELLULOSE SODIUM
     Indication: Product used for unknown indication
     Dosage: FROM STRENGTH 10MG/ML; FORM STRENGTH WAS CMC 10MG/ML/LAST ADMIN DATE:2024
     Route: 047
     Dates: start: 202403
  3. REFRESH LIQUIGEL [Suspect]
     Active Substance: CARBOXYMETHYLCELLULOSE SODIUM
     Indication: Product used for unknown indication
     Dosage: FROM STRENGTH 10MG/ML; FORM STRENGTH WAS CMC 10MG/ML
     Route: 047
  4. REFRESH CLASSIC [Suspect]
     Active Substance: POLYVINYL ALCOHOL\POVIDONE
     Indication: Product used for unknown indication
     Dosage: FORM STRENGTH WAS PVA 14MG/ML; POVIDONE 6MG/ML
     Route: 047

REACTIONS (7)
  - Cataract [Unknown]
  - Eye pain [Unknown]
  - Vision blurred [Unknown]
  - Eye discharge [Unknown]
  - Eyelid margin crusting [Unknown]
  - Feeling abnormal [Unknown]
  - Rapid eye movement sleep behaviour disorder [Unknown]
